FAERS Safety Report 12296954 (Version 1)
Quarter: 2016Q2

REPORT INFORMATION
  Report Type: Other
  Country: IT (occurrence: IT)
  Receive Date: 20160422
  Receipt Date: 20160422
  Transmission Date: 20160815
  Serious: Yes (Hospitalization, Other)
  Sender: FDA-Public Use
  Company Number: IT-MYLANLABS-2016M1016550

PATIENT

DRUGS (2)
  1. CAPECITABINA MYLAN 500 MG COMPRESSE RIVESTITE CON FILM [Suspect]
     Active Substance: CAPECITABINE
     Indication: METASTASES TO OVARY
     Dosage: 3150 MG, CYCLE
     Route: 048
     Dates: start: 20160302, end: 20160316
  2. OXALIPLATINO ACCORD [Suspect]
     Active Substance: OXALIPLATIN
     Indication: METASTASES TO OVARY
     Dosage: 204 MG, CYCLE
     Route: 042
     Dates: start: 20160302, end: 20160302

REACTIONS (10)
  - Dysphagia [None]
  - Abdominal pain [None]
  - Stomatitis [Recovering/Resolving]
  - Blood sodium decreased [Unknown]
  - Tachycardia [None]
  - Gastrointestinal hypermotility [None]
  - Diarrhoea [Not Recovered/Not Resolved]
  - Haemoglobin decreased [Unknown]
  - Mucosal inflammation [Unknown]
  - Mucosal ulceration [Unknown]

NARRATIVE: CASE EVENT DATE: 20160316
